FAERS Safety Report 14800190 (Version 1)
Quarter: 2018Q2

REPORT INFORMATION
  Report Type: Spontaneous
  Country: US (occurrence: US)
  Receive Date: 20180424
  Receipt Date: 20180424
  Transmission Date: 20180711
  Serious: No
  Sender: FDA-Public Use
  Company Number: US-BAYER-2018-076749

PATIENT
  Sex: Female

DRUGS (26)
  1. ATROVENT [Concomitant]
     Active Substance: IPRATROPIUM BROMIDE
  2. ALBUTEROL. [Concomitant]
     Active Substance: ALBUTEROL
  3. DULOXETINE. [Concomitant]
     Active Substance: DULOXETINE
  4. NITROSTAT [Concomitant]
     Active Substance: NITROGLYCERIN
  5. VITAMIN D3 [Concomitant]
     Active Substance: CHOLECALCIFEROL
  6. MELOXICAM. [Concomitant]
     Active Substance: MELOXICAM
  7. NAPROXEN. [Concomitant]
     Active Substance: NAPROXEN
  8. ALENDRONATE SODIUM. [Concomitant]
     Active Substance: ALENDRONATE SODIUM
  9. PANTOPRAZOLE [Concomitant]
     Active Substance: PANTOPRAZOLE
  10. BETASERON [Suspect]
     Active Substance: INTERFERON BETA-1B
     Indication: MULTIPLE SCLEROSIS
     Dosage: 0.25 MG, QOD
     Route: 058
  11. ASPIRIN. [Concomitant]
     Active Substance: ASPIRIN
  12. TIZANIDINE. [Concomitant]
     Active Substance: TIZANIDINE
  13. FUROSEMIDE. [Concomitant]
     Active Substance: FUROSEMIDE
     Dosage: UNK
  14. HYDROCORTONE [Concomitant]
     Active Substance: HYDROCORTISONE
  15. ADVAIR HFA [Concomitant]
     Active Substance: FLUTICASONE PROPIONATE\SALMETEROL XINAFOATE
  16. METOPROLOL. [Concomitant]
     Active Substance: METOPROLOL
  17. PREDNISONE. [Concomitant]
     Active Substance: PREDNISONE
  18. ONDANSETRON [Concomitant]
     Active Substance: ONDANSETRON
  19. FUROSEMIDE. [Concomitant]
     Active Substance: FUROSEMIDE
     Dosage: UNK
  20. METHOCARBAMOL. [Concomitant]
     Active Substance: METHOCARBAMOL
  21. GABAPENTIN. [Concomitant]
     Active Substance: GABAPENTIN
  22. PROAIR HFA [Concomitant]
     Active Substance: ALBUTEROL SULFATE
  23. POLYETHYLENE GLYCOL [Concomitant]
     Active Substance: POLYETHYLENE GLYCOLS
  24. HYDROCODONE [Concomitant]
     Active Substance: HYDROCODONE
  25. NYSTATIN. [Concomitant]
     Active Substance: NYSTATIN
  26. CLOTRIMAZOLE. [Concomitant]
     Active Substance: CLOTRIMAZOLE

REACTIONS (1)
  - Malaise [Not Recovered/Not Resolved]
